FAERS Safety Report 7359305-7 (Version None)
Quarter: 2011Q1

REPORT INFORMATION
  Report Type: 
  Country: None (occurrence: None)
  Receive Date: 20110317
  Receipt Date: 20090717
  Transmission Date: 20110831
  Serious: No
  Sender: FDA-Public Use
  Company Number: US-PFIZER INC-2009235132

PATIENT
  Sex: Male
  Weight: 74.83 kg

DRUGS (3)
  1. LISINOPRIL [Concomitant]
     Dosage: 10 MG, UNK
  2. NORVASC [Suspect]
     Indication: HYPERTENSION
     Dosage: 10 MG, 1X/DAY
     Dates: start: 20090606, end: 20090620
  3. METOPROLOL [Concomitant]
     Dosage: 25 MG, UNK

REACTIONS (1)
  - TACHYCARDIA [None]
